FAERS Safety Report 9888013 (Version 1)
Quarter: 2014Q1

REPORT INFORMATION
  Report Type: Spontaneous
  Country: NL (occurrence: NL)
  Receive Date: 20140211
  Receipt Date: 20140211
  Transmission Date: 20141002
  Serious: No
  Sender: FDA-Public Use
  Company Number: NL-009507513-1402NLD004727

PATIENT
  Age: 55 Year
  Sex: Female

DRUGS (1)
  1. SAFLUTAN [Suspect]
     Indication: GLAUCOMA
     Dosage: 1 DROP, QD
     Route: 047
     Dates: start: 2013

REACTIONS (2)
  - Eye irritation [Not Recovered/Not Resolved]
  - Incorrect product storage [Unknown]
